FAERS Safety Report 4463417-5 (Version None)
Quarter: 2004Q3

REPORT INFORMATION
  Report Type: 
  Country: None (occurrence: None)
  Receive Date: 20040928
  Receipt Date: 20040915
  Transmission Date: 20050211
  Serious: No
  Sender: FDA-Public Use
  Company Number: 2004UW11951

PATIENT
  Age: 64 Year
  Sex: Female

DRUGS (1)
  1. IRESSA [Suspect]
     Indication: NON-SMALL CELL LUNG CANCER

REACTIONS (5)
  - NODULE [None]
  - PSORIASIS [None]
  - RASH [None]
  - RED BLOOD CELL COUNT DECREASED [None]
  - SINUSITIS [None]
